FAERS Safety Report 10066934 (Version 1)
Quarter: 2014Q2

REPORT INFORMATION
  Report Type: Report from Study
  Country: US (occurrence: US)
  Receive Date: 20140409
  Receipt Date: 20140409
  Transmission Date: 20141212
  Serious: Yes (Other)
  Sender: FDA-Public Use
  Company Number: US-ROCHE-1374198

PATIENT
  Age: 80 Year
  Sex: Male
  Weight: 81.72 kg

DRUGS (12)
  1. RITUXAN [Suspect]
     Indication: NON-HODGKIN^S LYMPHOMA
     Route: 042
     Dates: start: 201201
  2. FELDENE [Concomitant]
     Indication: HAEMOGLOBIN
     Dosage: STARTED: 2 MONTHS AGO
     Route: 065
  3. PROCRIT [Concomitant]
     Dosage: STARTED: 3 MONTHS AGO
     Route: 065
  4. LISINOPRIL [Concomitant]
     Indication: BLOOD PRESSURE
     Route: 048
  5. FUROSEMIDE [Concomitant]
     Route: 048
  6. MEPERIDINE [Concomitant]
     Dosage: WITH RITUXAN
     Route: 065
     Dates: start: 201204
  7. AZOPT [Concomitant]
     Indication: GLAUCOMA
     Dosage: STARTED 2 MONTHS AGO
     Route: 065
  8. ALPHAGAN [Concomitant]
     Dosage: STARTED 2 MONTHS AGO
     Route: 065
  9. BETIMOL [Concomitant]
     Indication: GLAUCOMA
     Dosage: STARTED 2 MONTHS AGO
     Route: 065
  10. XALATAN [Concomitant]
     Indication: GLAUCOMA
     Dosage: 1 DROP IN EACH EYE
     Route: 065
  11. ACYCLOVIR [Concomitant]
     Route: 048
     Dates: start: 201201
  12. SULPHAMETHOXAZOLE + TRIMETHOPRIM [Concomitant]
     Route: 048
     Dates: start: 201201

REACTIONS (7)
  - Chest discomfort [Not Recovered/Not Resolved]
  - Tremor [Not Recovered/Not Resolved]
  - Pyrexia [Not Recovered/Not Resolved]
  - Blood pressure increased [Not Recovered/Not Resolved]
  - Chills [Not Recovered/Not Resolved]
  - Visual impairment [Not Recovered/Not Resolved]
  - Muscle tightness [Not Recovered/Not Resolved]
